FAERS Safety Report 21623575 (Version 1)
Quarter: 2022Q4

REPORT INFORMATION
  Report Type: Report from Study
  Country: US (occurrence: US)
  Receive Date: 20221121
  Receipt Date: 20221121
  Transmission Date: 20230113
  Serious: No
  Sender: FDA-Public Use
  Company Number: US-ABBVIE-21K-163-4189566-00

PATIENT
  Sex: Male

DRUGS (8)
  1. HUMIRA [Suspect]
     Active Substance: ADALIMUMAB
     Indication: Crohn^s disease
     Dosage: TIME INTERVAL: 1 TOTAL: DAY 1?FORM STRENGTH- 40 MG
     Route: 058
     Dates: start: 20210921, end: 20210921
  2. HUMIRA [Suspect]
     Active Substance: ADALIMUMAB
     Dosage: TIME INTERVAL: 1 TOTAL: DAY 15?FORM STRENGTH- 40 MG
     Route: 058
     Dates: start: 20211105, end: 20211105
  3. HUMIRA [Suspect]
     Active Substance: ADALIMUMAB
     Dosage: THERAPY START DATE- 2022?FORM STRENGTH- 40 MG
     Route: 058
     Dates: end: 20220131
  4. HUMIRA [Suspect]
     Active Substance: ADALIMUMAB
     Dosage: FORM STRENGTH- 40 MG?THERAPY END DATE- 2022
     Route: 058
     Dates: start: 20220203
  5. HUMIRA [Suspect]
     Active Substance: ADALIMUMAB
     Dosage: THERAPY START DATE- 2022?FORM STRENGTH- 40 MG
     Route: 058
  6. MODERNA COVID-19 VACCINE [Concomitant]
     Active Substance: ELASOMERAN
     Indication: COVID-19 immunisation
     Dosage: TIME INTERVAL: 1 TOTAL: FIRST DOSE
     Route: 029
     Dates: start: 20210327, end: 20210327
  7. MODERNA COVID-19 VACCINE [Concomitant]
     Active Substance: ELASOMERAN
     Indication: COVID-19 immunisation
     Dosage: TIME INTERVAL: 1 TOTAL: SECOND DOSE
     Route: 029
     Dates: start: 20210418, end: 20210418
  8. MODERNA COVID-19 VACCINE [Concomitant]
     Active Substance: ELASOMERAN
     Indication: COVID-19 immunisation
     Dosage: TIME INTERVAL: 1 TOTAL: BOOSTER DOSE
     Route: 029
     Dates: start: 20211215, end: 20211215

REACTIONS (9)
  - Gastrointestinal sounds abnormal [Recovering/Resolving]
  - Device issue [Unknown]
  - Incorrect dose administered [Unknown]
  - Injection site erythema [Recovered/Resolved]
  - Injection site pruritus [Recovered/Resolved]
  - Injection site papule [Recovered/Resolved]
  - Diarrhoea [Not Recovered/Not Resolved]
  - Drug ineffective [Not Recovered/Not Resolved]
  - Arthralgia [Not Recovered/Not Resolved]

NARRATIVE: CASE EVENT DATE: 20210101
